FAERS Safety Report 5179011-7 (Version None)
Quarter: 2006Q4

REPORT INFORMATION
  Report Type: 
  Country: None (occurrence: None)
  Receive Date: 20061218
  Receipt Date: 20061218
  Transmission Date: 20070319
  Serious: No
  Sender: FDA-Public Use
  Company Number: None

PATIENT
  Sex: Female
  Weight: 86.1834 kg

DRUGS (1)
  1. GAMMAGARD S/D [Suspect]
     Indication: POLYMYOSITIS
     Dosage: 30GM   MONTHLY  IV DRIP
     Route: 041
     Dates: start: 20061214, end: 20061214

REACTIONS (1)
  - PHARMACEUTICAL PRODUCT COMPLAINT [None]
